FAERS Safety Report 9539261 (Version 1)
Quarter: 2013Q3

REPORT INFORMATION
  Report Type: Not Available
  Country: FR (occurrence: FR)
  Receive Date: 20130920
  Receipt Date: 20130920
  Transmission Date: 20140515
  Serious: Yes (Hospitalization)
  Sender: FDA-Public Use
  Company Number: FR-NAPPMUNDI-GBR-2013-0015672

PATIENT
  Age: 86 Year
  Sex: Female

DRUGS (7)
  1. OXYCONTIN LP, COMPRIME PELLICULE A LIBERATION PROLONGEE [Suspect]
     Indication: PRODUCT USED FOR UNKNOWN INDICATION
     Dosage: 50 MG, BID
     Route: 048
     Dates: end: 20130813
  2. OXYNORM 5 MG, GELULE [Suspect]
     Indication: PRODUCT USED FOR UNKNOWN INDICATION
     Dosage: 5 MG, QID
     Route: 048
     Dates: end: 20130811
  3. LYRICA [Concomitant]
  4. TRANSIPEG                          /00754501/ [Concomitant]
  5. KARDEGIC [Concomitant]
  6. LEVOTHYROX [Concomitant]
  7. LAROXYL [Concomitant]
     Dosage: UNK
     Dates: end: 20130807

REACTIONS (4)
  - Myoclonus [Recovered/Resolved]
  - Fall [Recovered/Resolved]
  - Hallucination [Recovered/Resolved]
  - Disorientation [Recovered/Resolved]
